FAERS Safety Report 10686275 (Version 2)
Quarter: 2015Q1

REPORT INFORMATION
  Report Type: Spontaneous
  Country: US (occurrence: US)
  Receive Date: 20141231
  Receipt Date: 20150106
  Transmission Date: 20150720
  Serious: Yes (Other)
  Sender: FDA-Public Use
  Company Number: US-ALLERGAN-1426388US

PATIENT
  Age: 94 Year
  Sex: Female

DRUGS (8)
  1. LUMIGAN [Suspect]
     Active Substance: BIMATOPROST
     Indication: PRODUCT USED FOR UNKNOWN INDICATION
     Dosage: UNK
     Route: 047
  2. DORZOLAMIDE [Concomitant]
     Active Substance: DORZOLAMIDE
  3. LISINOPRIL. [Concomitant]
     Active Substance: LISINOPRIL
     Dosage: UNK
  4. ASPIRIN. [Concomitant]
     Active Substance: ASPIRIN
     Dosage: 81 MG, UNK
     Route: 048
  5. BRIMONIDINE [Concomitant]
     Active Substance: BRIMONIDINE\BRIMONIDINE TARTRATE
  6. LEVOBUNOLOL [Concomitant]
     Active Substance: LEVOBUNOLOL
  7. TIMOLOL [Concomitant]
     Active Substance: TIMOLOL
  8. METHAZOLAMIDE. [Concomitant]
     Active Substance: METHAZOLAMIDE

REACTIONS (10)
  - Myalgia [Unknown]
  - Nasal congestion [Unknown]
  - Asthenia [Unknown]
  - Vision blurred [Unknown]
  - Somnolence [Unknown]
  - Arthralgia [Unknown]
  - Dizziness [Unknown]
  - Surgery [Unknown]
  - Fatigue [Unknown]
  - Depression [Unknown]
